FAERS Safety Report 19010485 (Version 1)
Quarter: 2021Q1

REPORT INFORMATION
  Report Type: Report from Study
  Country: CA (occurrence: CA)
  Receive Date: 20210316
  Receipt Date: 20210316
  Transmission Date: 20210420
  Serious: Yes (Other)
  Sender: FDA-Public Use
  Company Number: CA-JNJFOC-20210303281

PATIENT
  Age: 16 Year
  Sex: Male
  Weight: 91.6 kg

DRUGS (1)
  1. REMICADE [Suspect]
     Active Substance: INFLIXIMAB
     Indication: COLITIS ULCERATIVE
     Dosage: 10 MG/KG?ON 03?MAR?2021, THE PATIENT RECEIVED 1ST REMICADE DOSE. ON 10?MAR?2021, THE PATIENT RECEIVE
     Route: 042
     Dates: start: 20210303

REACTIONS (5)
  - Off label use [Unknown]
  - Frequent bowel movements [Not Recovered/Not Resolved]
  - Product use issue [Unknown]
  - Haematochezia [Not Recovered/Not Resolved]
  - General physical health deterioration [Not Recovered/Not Resolved]

NARRATIVE: CASE EVENT DATE: 20210303
